FAERS Safety Report 18330099 (Version 12)
Quarter: 2022Q1

REPORT INFORMATION
  Report Type: Other
  Country: CA (occurrence: None)
  Receive Date: 20200930
  Receipt Date: 20220125
  Transmission Date: 20220424
  Serious: Yes (Hospitalization, Other)
  Sender: FDA-Public Use
  Company Number: CA-ROCHE-1737396

PATIENT
  Sex: Female
  Weight: 72.5 kg

DRUGS (73)
  1. ACTEMRA [Suspect]
     Active Substance: TOCILIZUMAB
     Indication: Still^s disease
     Dosage: ONGOING 20-15-10-5 MG FOR 4 WEEKS
     Route: 042
     Dates: start: 20160108, end: 201602
  2. ACTEMRA [Suspect]
     Active Substance: TOCILIZUMAB
     Indication: Juvenile idiopathic arthritis
     Dosage: NO PIRS RECEIVED BETWEEN 20/JAN/2017 TO 04/JUN/2018; DOSAGE NOTED ACCORDING TO PRESCRIPTION ENROLMEN
     Route: 042
     Dates: start: 20160307, end: 20170512
  3. ACTEMRA [Suspect]
     Active Substance: TOCILIZUMAB
     Dosage: INFUSION NUMBER 14, NO PIRS RECEIVED BETWEEN 20/JAN/2017 TO 04/JUN/2018; DOSAGE NOTED ACCORDING TO P
     Route: 042
     Dates: start: 20170704, end: 20190830
  4. ACTEMRA [Suspect]
     Active Substance: TOCILIZUMAB
     Dosage: ADDITIONAL BATCH/LOT FROM 29/OCT/2019: B2086 (31/MAY/2021)
     Route: 042
     Dates: start: 20191003, end: 20191029
  5. ACTEMRA [Suspect]
     Active Substance: TOCILIZUMAB
     Dosage: PATIENT RECEIVED TWO DOSES PRIOR TO RPAP ENROLMENT. DOSAGE/INFUSION DETAILS WERE NOT PROVIDED, NOR B
     Route: 042
     Dates: start: 201601, end: 201602
  6. ACTEMRA [Suspect]
     Active Substance: TOCILIZUMAB
     Route: 042
     Dates: start: 20200423, end: 20200423
  7. ACTEMRA [Suspect]
     Active Substance: TOCILIZUMAB
     Dosage: ADDITIONAL BATCH/LOT FROM 23/APR/2020: B2083 (31/OCT/2021)
     Route: 042
     Dates: start: 20191204, end: 20200423
  8. ACTEMRA [Suspect]
     Active Substance: TOCILIZUMAB
     Dosage: NO PIRS RECEIVED BETWEEN 20/JAN/2017 TO 04/JUN/2018; DOSAGE NOTED ACCORDING TO PRESCRIPTION ENROLMEN
     Route: 042
     Dates: start: 20190830
  9. ACTEMRA [Suspect]
     Active Substance: TOCILIZUMAB
     Dosage: ADDITIONAL BATCH/LOT FROM 26-AUG-2020: B2083 31-OCT- 202
     Route: 042
     Dates: start: 20200603, end: 20200826
  10. ACTEMRA [Suspect]
     Active Substance: TOCILIZUMAB
     Route: 042
     Dates: start: 20200917
  11. ACTEMRA [Suspect]
     Active Substance: TOCILIZUMAB
     Route: 042
     Dates: start: 20210310
  12. ACTEMRA [Suspect]
     Active Substance: TOCILIZUMAB
     Route: 042
     Dates: start: 20210325, end: 20210505
  13. ACTEMRA [Suspect]
     Active Substance: TOCILIZUMAB
     Dosage: NO PIRS RECEIVED BETWEEN 20/JAN/2017 TO 04/JUN/2018
     Route: 042
     Dates: start: 20170311
  14. ACTEMRA [Suspect]
     Active Substance: TOCILIZUMAB
     Route: 042
     Dates: start: 20191205
  15. ACTEMRA [Suspect]
     Active Substance: TOCILIZUMAB
     Route: 042
     Dates: start: 20210527, end: 20210617
  16. ACTEMRA [Suspect]
     Active Substance: TOCILIZUMAB
     Route: 042
     Dates: start: 20210303, end: 20210303
  17. ACTEMRA [Suspect]
     Active Substance: TOCILIZUMAB
     Route: 042
     Dates: start: 20210707, end: 20210707
  18. ACTEMRA [Suspect]
     Active Substance: TOCILIZUMAB
     Route: 042
     Dates: start: 20210728, end: 20210728
  19. ACTEMRA [Suspect]
     Active Substance: TOCILIZUMAB
     Route: 042
     Dates: start: 20210819, end: 20210819
  20. ACTEMRA [Suspect]
     Active Substance: TOCILIZUMAB
     Route: 042
     Dates: start: 20210910, end: 20211001
  21. ACTEMRA [Suspect]
     Active Substance: TOCILIZUMAB
     Route: 042
     Dates: start: 20211019, end: 20211110
  22. ACTEMRA [Suspect]
     Active Substance: TOCILIZUMAB
     Route: 042
     Dates: start: 20211202, end: 20211222
  23. ACTEMRA [Suspect]
     Active Substance: TOCILIZUMAB
     Route: 042
     Dates: start: 20211222, end: 20211222
  24. ACTEMRA [Suspect]
     Active Substance: TOCILIZUMAB
     Route: 042
     Dates: start: 20220113
  25. METHOTREXATE [Suspect]
     Active Substance: METHOTREXATE
     Indication: Product used for unknown indication
     Route: 065
  26. CIPRALEX [Suspect]
     Active Substance: ESCITALOPRAM OXALATE
     Indication: Anxiety
     Route: 065
     Dates: end: 2020
  27. CIPRALEX [Suspect]
     Active Substance: ESCITALOPRAM OXALATE
     Route: 065
     Dates: start: 2020, end: 2022
  28. CIPRALEX [Suspect]
     Active Substance: ESCITALOPRAM OXALATE
     Dosage: DECREASE 5MG EVERY 7 DAYS
     Route: 065
     Dates: start: 2022
  29. SUCRALFATE [Concomitant]
     Active Substance: SUCRALFATE
  30. FOLIC ACID [Concomitant]
     Active Substance: FOLIC ACID
  31. DOMPERIDONE [Concomitant]
     Active Substance: DOMPERIDONE
  32. PANTOPRAZOLE SODIUM [Concomitant]
     Active Substance: PANTOPRAZOLE SODIUM
  33. PIROCAM [Concomitant]
  34. SOLU-MEDROL [Concomitant]
     Active Substance: METHYLPREDNISOLONE SODIUM SUCCINATE
     Indication: Premedication
     Route: 042
     Dates: start: 20160531, end: 20160531
  35. SOLU-MEDROL [Concomitant]
     Active Substance: METHYLPREDNISOLONE SODIUM SUCCINATE
     Route: 042
     Dates: start: 20180925, end: 20180925
  36. SOLU-MEDROL [Concomitant]
     Active Substance: METHYLPREDNISOLONE SODIUM SUCCINATE
     Route: 042
     Dates: start: 20181120, end: 20190115
  37. SOLU-MEDROL [Concomitant]
     Active Substance: METHYLPREDNISOLONE SODIUM SUCCINATE
     Route: 042
     Dates: start: 20190604, end: 20190604
  38. SOLU-MEDROL [Concomitant]
     Active Substance: METHYLPREDNISOLONE SODIUM SUCCINATE
     Route: 042
     Dates: start: 20191029, end: 20191029
  39. SOLU-MEDROL [Concomitant]
     Active Substance: METHYLPREDNISOLONE SODIUM SUCCINATE
     Route: 042
     Dates: start: 20190311, end: 20190311
  40. SOLU-MEDROL [Concomitant]
     Active Substance: METHYLPREDNISOLONE SODIUM SUCCINATE
     Route: 042
     Dates: start: 20190830, end: 20191003
  41. SOLU-MEDROL [Concomitant]
     Active Substance: METHYLPREDNISOLONE SODIUM SUCCINATE
     Route: 042
     Dates: start: 20210728, end: 20210728
  42. TYLENOL [Concomitant]
     Active Substance: ACETAMINOPHEN
     Route: 048
     Dates: start: 20181218, end: 20181218
  43. TYLENOL [Concomitant]
     Active Substance: ACETAMINOPHEN
     Route: 048
     Dates: start: 20190311, end: 20190311
  44. TYLENOL [Concomitant]
     Active Substance: ACETAMINOPHEN
     Route: 048
     Dates: start: 20190506, end: 20190506
  45. TYLENOL [Concomitant]
     Active Substance: ACETAMINOPHEN
     Route: 048
     Dates: start: 20190702, end: 20190702
  46. TYLENOL [Concomitant]
     Active Substance: ACETAMINOPHEN
     Route: 048
     Dates: start: 20191204, end: 20191204
  47. PREDNISONE [Concomitant]
     Active Substance: PREDNISONE
     Dosage: ONGOING 20-15-10-5 MG FOR 4 WEEKS
     Dates: start: 20191123
  48. CORTISONE [Concomitant]
     Active Substance: CORTISONE
     Route: 030
     Dates: start: 20200422
  49. BENADRYL [Concomitant]
     Active Substance: DIPHENHYDRAMINE HYDROCHLORIDE
     Route: 042
     Dates: start: 20200728
  50. BENADRYL [Concomitant]
     Active Substance: DIPHENHYDRAMINE HYDROCHLORIDE
     Route: 042
     Dates: start: 20160425, end: 20180731
  51. BENADRYL [Concomitant]
     Active Substance: DIPHENHYDRAMINE HYDROCHLORIDE
     Route: 042
     Dates: start: 20180828, end: 20180828
  52. BENADRYL [Concomitant]
     Active Substance: DIPHENHYDRAMINE HYDROCHLORIDE
     Route: 042
     Dates: start: 20180925, end: 20190702
  53. BENADRYL [Concomitant]
     Active Substance: DIPHENHYDRAMINE HYDROCHLORIDE
     Route: 042
     Dates: start: 20190808, end: 20190808
  54. BENADRYL [Concomitant]
     Active Substance: DIPHENHYDRAMINE HYDROCHLORIDE
     Route: 042
     Dates: start: 20190830, end: 20200303
  55. BENADRYL [Concomitant]
     Active Substance: DIPHENHYDRAMINE HYDROCHLORIDE
     Route: 042
     Dates: start: 20200326, end: 20200326
  56. BENADRYL [Concomitant]
     Active Substance: DIPHENHYDRAMINE HYDROCHLORIDE
     Route: 042
     Dates: start: 20200423, end: 20200603
  57. SOLU-CORTEF [Concomitant]
     Active Substance: HYDROCORTISONE SODIUM SUCCINATE
     Indication: Premedication
     Route: 042
     Dates: start: 20160425, end: 20160425
  58. SOLU-CORTEF [Concomitant]
     Active Substance: HYDROCORTISONE SODIUM SUCCINATE
     Route: 042
     Dates: start: 20160629, end: 20180828
  59. SOLU-CORTEF [Concomitant]
     Active Substance: HYDROCORTISONE SODIUM SUCCINATE
     Route: 042
     Dates: start: 20181023, end: 20181023
  60. SOLU-CORTEF [Concomitant]
     Active Substance: HYDROCORTISONE SODIUM SUCCINATE
     Route: 042
     Dates: start: 20190702, end: 20190808
  61. SOLU-CORTEF [Concomitant]
     Active Substance: HYDROCORTISONE SODIUM SUCCINATE
     Route: 042
     Dates: start: 20190829, end: 20200603
  62. SOLU-CORTEF [Concomitant]
     Active Substance: HYDROCORTISONE SODIUM SUCCINATE
     Route: 042
     Dates: start: 20200628, end: 20210707
  63. SOLU-CORTEF [Concomitant]
     Active Substance: HYDROCORTISONE SODIUM SUCCINATE
     Route: 042
     Dates: start: 20190408, end: 20190506
  64. SOLU-CORTEF [Concomitant]
     Active Substance: HYDROCORTISONE SODIUM SUCCINATE
     Route: 042
     Dates: start: 20200826
  65. SOLU-CORTEF [Concomitant]
     Active Substance: HYDROCORTISONE SODIUM SUCCINATE
     Route: 042
     Dates: start: 20200728
  66. SOLU-CORTEF [Concomitant]
     Active Substance: HYDROCORTISONE SODIUM SUCCINATE
     Route: 042
     Dates: start: 20190211
  67. NOVOPIROCAM [Concomitant]
  68. DOMPERIDONE [Concomitant]
     Active Substance: DOMPERIDONE
  69. CALCIUM CARBONATE\CHOLECALCIFEROL [Concomitant]
     Active Substance: CALCIUM CARBONATE\CHOLECALCIFEROL
     Route: 048
     Dates: start: 20201010
  70. INDOMETHACIN [Concomitant]
     Active Substance: INDOMETHACIN
  71. RITALIN [Concomitant]
     Active Substance: METHYLPHENIDATE HYDROCHLORIDE
  72. EFFEXOR [Concomitant]
     Active Substance: VENLAFAXINE HYDROCHLORIDE
     Indication: Depression
     Dosage: INCREASE TO 150MG 29-JAN-2022
     Route: 048
     Dates: start: 2022
  73. WELLBUTRIN [Concomitant]
     Active Substance: BUPROPION HYDROCHLORIDE
     Indication: Depression
     Route: 048
     Dates: start: 2022

REACTIONS (61)
  - Pharyngitis [Unknown]
  - Dizziness [Unknown]
  - Crying [Recovered/Resolved]
  - Panic reaction [Recovered/Resolved]
  - Feeling hot [Unknown]
  - Discomfort [Unknown]
  - Therapeutic product effect decreased [Unknown]
  - Heart rate increased [Unknown]
  - Abdominal pain [Unknown]
  - Nausea [Unknown]
  - Toothache [Unknown]
  - Fatigue [Unknown]
  - Diarrhoea [Unknown]
  - Fall [Unknown]
  - Pain [Unknown]
  - Vascular rupture [Unknown]
  - Infusion related reaction [Unknown]
  - Ear pain [Recovered/Resolved]
  - Gastroenteritis [Unknown]
  - Weight increased [Not Recovered/Not Resolved]
  - Arthralgia [Unknown]
  - Body temperature increased [Unknown]
  - Oxygen saturation decreased [Unknown]
  - Arthritis [Unknown]
  - Feeling cold [Unknown]
  - Hyperthermia [Unknown]
  - Infusion related reaction [Unknown]
  - Pyrexia [Unknown]
  - Blood pressure diastolic abnormal [Unknown]
  - Urinary tract infection [Recovered/Resolved]
  - Anxiety [Not Recovered/Not Resolved]
  - Vein collapse [Unknown]
  - Poor venous access [Unknown]
  - Lymphadenitis [Unknown]
  - Dizziness [Recovered/Resolved]
  - Mouth ulceration [Unknown]
  - Lip ulceration [Unknown]
  - Injection site pruritus [Recovered/Resolved]
  - Off label use [Unknown]
  - Headache [Recovering/Resolving]
  - Pain in extremity [Unknown]
  - Gastrointestinal pain [Unknown]
  - Dermatitis allergic [Unknown]
  - Blood pressure diastolic increased [Unknown]
  - Heart rate increased [Unknown]
  - Oedema peripheral [Unknown]
  - External ear cellulitis [Recovered/Resolved]
  - Peripheral swelling [Not Recovered/Not Resolved]
  - Skin discolouration [Unknown]
  - Weight decreased [Unknown]
  - Drug ineffective [Unknown]
  - Arthropathy [Unknown]
  - Body temperature increased [Unknown]
  - Body temperature abnormal [Unknown]
  - Rash [Not Recovered/Not Resolved]
  - Drug intolerance [Unknown]
  - Palpitations [Recovered/Resolved]
  - Heart rate increased [Unknown]
  - Hypersomnia [Unknown]
  - Depression [Not Recovered/Not Resolved]
  - Major depression [Not Recovered/Not Resolved]

NARRATIVE: CASE EVENT DATE: 20160101
